FAERS Safety Report 7591421-7 (Version None)
Quarter: 2011Q2

REPORT INFORMATION
  Report Type: 
  Country: None (occurrence: None)
  Receive Date: 20110630
  Receipt Date: 20110630
  Transmission Date: 20111010
  Serious: Yes (Disabling, Other)
  Sender: FDA-Public Use
  Company Number: None

PATIENT
  Age: 19 Year
  Sex: Female
  Weight: 56.246 kg

DRUGS (1)
  1. IMPLANON [Suspect]
     Dates: start: 20110301, end: 20110629

REACTIONS (3)
  - SWELLING [None]
  - RASH MACULO-PAPULAR [None]
  - RASH ERYTHEMATOUS [None]
